FAERS Safety Report 18253746 (Version 2)
Quarter: 2020Q4

REPORT INFORMATION
  Report Type: Spontaneous
  Country: US (occurrence: US)
  Receive Date: 20200910
  Receipt Date: 20201103
  Transmission Date: 20210113
  Serious: No
  Sender: FDA-Public Use
  Company Number: US-PFIZER INC-2020256876

PATIENT
  Age: 77 Year
  Sex: Male

DRUGS (3)
  1. XELJANZ [Suspect]
     Active Substance: TOFACITINIB CITRATE
     Indication: LIMB DISCOMFORT
  2. XELJANZ [Suspect]
     Active Substance: TOFACITINIB CITRATE
     Indication: LYMPHOCYTIC LEUKAEMIA
     Dosage: 5 MG, DAILY (5 MG TAKE 1 TABLET DAILY)
  3. XELJANZ [Suspect]
     Active Substance: TOFACITINIB CITRATE
     Indication: BLOOD COUNT ABNORMAL

REACTIONS (5)
  - Product use in unapproved indication [Unknown]
  - Drug effective for unapproved indication [Unknown]
  - Localised infection [Unknown]
  - Off label use [Unknown]
  - Ingrowing nail [Unknown]
